FAERS Safety Report 6739804-9 (Version None)
Quarter: 2010Q2

REPORT INFORMATION
  Report Type: 
  Country: None (occurrence: None)
  Receive Date: 20100525
  Receipt Date: 20100512
  Transmission Date: 20101027
  Serious: Yes (Hospitalization)
  Sender: FDA-Public Use
  Company Number: PHFR2010GB00635

PATIENT

DRUGS (8)
  1. TRILEPTAL [Suspect]
     Indication: EPILEPSY
  2. PARACETAMOL [Suspect]
     Dosage: UNK
  3. VALPROATE SODIUM [Concomitant]
  4. LAMOTRIGINE [Concomitant]
  5. OMEPRAZOLE [Concomitant]
  6. SODIUM PICOSULFATE [Concomitant]
  7. DIAZEPAM [Concomitant]
  8. CITALOPRAM [Concomitant]

REACTIONS (7)
  - CONVULSION [None]
  - DIZZINESS [None]
  - INTENTIONAL OVERDOSE [None]
  - LIVER INJURY [None]
  - NAUSEA [None]
  - SUICIDE ATTEMPT [None]
  - VOMITING [None]
